FAERS Safety Report 17913090 (Version 1)
Quarter: 2020Q2

REPORT INFORMATION
  Report Type: Spontaneous
  Country: DE (occurrence: DE)
  Receive Date: 20200618
  Receipt Date: 20200618
  Transmission Date: 20200714
  Serious: Yes (Congenital Anomaly, Other)
  Sender: FDA-Public Use
  Company Number: DE-MYLANLABS-2020M1056224

PATIENT
  Age: 1 Day
  Sex: Male
  Weight: 2.53 kg

DRUGS (3)
  1. SERTRALINE [Concomitant]
     Active Substance: SERTRALINE HYDROCHLORIDE
     Indication: DEPRESSION
     Dosage: 75 [MG/D (BIS 50 MG/D) ]
     Route: 064
     Dates: start: 20191018, end: 20191106
  2. CELESTAN                           /00008501/ [Concomitant]
     Active Substance: BETAMETHASONE
     Indication: MATERNAL THERAPY TO ENHANCE FOETAL LUNG MATURITY
     Dosage: UNK
     Route: 064
  3. ESCITALOPRAM [Suspect]
     Active Substance: ESCITALOPRAM OXALATE
     Indication: DEPRESSION
     Dosage: 10 [MG/D ]
     Route: 064
     Dates: start: 20190305, end: 20191018

REACTIONS (11)
  - Respiratory disorder neonatal [Recovered/Resolved]
  - Trisomy 21 [Not Recovered/Not Resolved]
  - Congenital hearing disorder [Unknown]
  - Craniosynostosis [Unknown]
  - Septum pellucidum agenesis [Not Recovered/Not Resolved]
  - Patent ductus arteriosus [Recovered/Resolved]
  - Cryptorchism [Recovered/Resolved]
  - Cerebral ventricle dilatation [Unknown]
  - Pulmonary hypertension [Recovered/Resolved]
  - Atrial septal defect [Recovered/Resolved]
  - Foetal exposure during pregnancy [Recovered/Resolved]

NARRATIVE: CASE EVENT DATE: 20191106
